FAERS Safety Report 16740848 (Version 1)
Quarter: 2019Q3

REPORT INFORMATION
  Report Type: Report from Study
  Country: US (occurrence: US)
  Receive Date: 20190826
  Receipt Date: 20190826
  Transmission Date: 20191005
  Serious: Yes (Other)
  Sender: FDA-Public Use
  Company Number: US-JNJFOC-20180907400

PATIENT
  Age: 84 Year
  Sex: Male
  Weight: 54 kg

DRUGS (9)
  1. BIOTIN [Concomitant]
     Active Substance: BIOTIN
     Route: 065
  2. MONTELUKAST [Concomitant]
     Active Substance: MONTELUKAST SODIUM
  3. METOPROLOL. [Concomitant]
     Active Substance: METOPROLOL
     Route: 065
  4. CENTRUM SILVER [Concomitant]
     Active Substance: MINERALS\VITAMINS
  5. IMBRUVICA [Suspect]
     Active Substance: IBRUTINIB
     Indication: CHRONIC LYMPHOCYTIC LEUKAEMIA
     Route: 048
     Dates: start: 20180401, end: 201904
  6. VITAMIN D3 [Concomitant]
     Active Substance: CHOLECALCIFEROL
  7. LISINOPRIL. [Concomitant]
     Active Substance: LISINOPRIL
     Route: 065
  8. LATANOPROST. [Concomitant]
     Active Substance: LATANOPROST
     Route: 065
  9. MUCINEX [Concomitant]
     Active Substance: GUAIFENESIN

REACTIONS (15)
  - Respiratory tract congestion [Not Recovered/Not Resolved]
  - Onychoclasis [Unknown]
  - Muscle spasms [Not Recovered/Not Resolved]
  - Glaucoma [Not Recovered/Not Resolved]
  - Asthenia [Unknown]
  - Haemorrhagic diathesis [Not Recovered/Not Resolved]
  - Nail growth abnormal [Not Recovered/Not Resolved]
  - Arthritis [Not Recovered/Not Resolved]
  - Peripheral swelling [Not Recovered/Not Resolved]
  - Hair growth abnormal [Unknown]
  - Pain of skin [Not Recovered/Not Resolved]
  - Increased tendency to bruise [Not Recovered/Not Resolved]
  - Cough [Not Recovered/Not Resolved]
  - Fatigue [Not Recovered/Not Resolved]
  - Prostatic disorder [Unknown]

NARRATIVE: CASE EVENT DATE: 20180601
